FAERS Safety Report 21556214 (Version 10)
Quarter: 2024Q3

REPORT INFORMATION
  Report Type: Report from Study
  Country: CA (occurrence: CA)
  Receive Date: 20221104
  Receipt Date: 20240716
  Transmission Date: 20241017
  Serious: Yes (Hospitalization, Other)
  Sender: TAKEDA
  Company Number: CA-TAKEDA-2021TUS019371

PATIENT
  Age: 64 Year
  Sex: Female

DRUGS (15)
  1. IXAZOMIB [Suspect]
     Active Substance: IXAZOMIB
     Indication: Plasma cell myeloma
     Dosage: 3 MILLIGRAM
     Route: 048
     Dates: start: 20201231
  2. DEXAMETHASONE [Suspect]
     Active Substance: DEXAMETHASONE
     Indication: Plasma cell myeloma
     Dosage: 20 MILLIGRAM, 1/WEEK
     Route: 065
     Dates: start: 20201229
  3. REVLIMID [Suspect]
     Active Substance: LENALIDOMIDE
     Indication: Plasma cell myeloma
     Dosage: 10 MILLIGRAM, QD
     Route: 065
     Dates: start: 20201229
  4. REVLIMID [Suspect]
     Active Substance: LENALIDOMIDE
     Dosage: 10 MILLIGRAM, Q3WEEKS
     Route: 065
     Dates: start: 20211231
  5. ASPIRIN [Concomitant]
     Active Substance: ASPIRIN
     Dosage: 81 MILLIGRAM, QD
     Route: 065
     Dates: start: 20201229
  6. ACYCLOVIR [Concomitant]
     Active Substance: ACYCLOVIR
     Dosage: 400 MILLIGRAM, BID
     Route: 048
     Dates: start: 20201229
  7. ENTECAVIR [Concomitant]
     Active Substance: ENTECAVIR
     Dosage: 0.5 MILLIGRAM, QD
     Route: 065
     Dates: start: 20201229
  8. OLANZAPINE [Concomitant]
     Active Substance: OLANZAPINE
     Dosage: 5 MILLIGRAM, BID
     Route: 065
     Dates: start: 20201229
  9. ZOMETA [Concomitant]
     Active Substance: ZOLEDRONIC ACID
     Dosage: UNK UNK, Q4WEEKS
     Route: 065
     Dates: start: 20201229
  10. ZOMETA [Concomitant]
     Active Substance: ZOLEDRONIC ACID
     Dosage: UNK
     Route: 065
     Dates: start: 20220222
  11. VITAMIN D [Concomitant]
     Active Substance: VITAMIN D NOS
     Dosage: UNK, 3/WEEK
     Route: 065
     Dates: start: 20201229
  12. SEPTRA DS [Concomitant]
     Active Substance: SULFAMETHOXAZOLE\TRIMETHOPRIM
     Dosage: UNK
     Route: 065
     Dates: start: 20201230
  13. ONDANSETRON [Concomitant]
     Active Substance: ONDANSETRON
     Dosage: 4 MILLIGRAM, 1/WEEK
     Route: 065
  14. HYDROCORTISONE [Concomitant]
     Active Substance: HYDROCORTISONE\HYDROCORTISONE ACETATE
     Dosage: UNK
     Route: 065
  15. PANTOPRAZOLE MAGNESIUM [Concomitant]
     Active Substance: PANTOPRAZOLE MAGNESIUM
     Dosage: UNK
     Route: 065

REACTIONS (28)
  - Diarrhoea [Not Recovered/Not Resolved]
  - Gout [Recovering/Resolving]
  - Chondrocalcinosis [Recovering/Resolving]
  - Pneumonia [Recovered/Resolved]
  - Viral infection [Recovering/Resolving]
  - Haemoglobin decreased [Recovered/Resolved]
  - White blood cell count decreased [Recovered/Resolved]
  - Platelet count decreased [Recovered/Resolved]
  - Herpes zoster [Recovered/Resolved]
  - Flank pain [Recovered/Resolved]
  - Abdominal pain upper [Recovered/Resolved]
  - Discomfort [Recovered/Resolved]
  - Myalgia [Recovered/Resolved]
  - Spinal fracture [Recovering/Resolving]
  - Arthritis infective [Recovered/Resolved]
  - Rash [Not Recovered/Not Resolved]
  - Rash macular [Unknown]
  - Nausea [Not Recovered/Not Resolved]
  - Oropharyngeal pain [Recovering/Resolving]
  - Rhinorrhoea [Recovering/Resolving]
  - Blood creatinine increased [Unknown]
  - Hypoaesthesia [Recovering/Resolving]
  - Contusion [Unknown]
  - Pain in jaw [Recovering/Resolving]
  - Respiratory tract infection [Recovering/Resolving]
  - Pyrexia [Unknown]
  - Urinary tract infection [Recovered/Resolved]
  - Back pain [Unknown]

NARRATIVE: CASE EVENT DATE: 20201231
